FAERS Safety Report 5612463-4 (Version None)
Quarter: 2008Q1

REPORT INFORMATION
  Report Type: 
  Country: None (occurrence: None)
  Receive Date: 20080129
  Receipt Date: 20080123
  Transmission Date: 20080703
  Serious: Yes (Other)
  Sender: FDA-Public Use
  Company Number: CHPA2008US01495

PATIENT
  Sex: Female

DRUGS (1)
  1. MAALOX ANTACID/ ANTIGAS RS LIQ SMTHCHERRY (NCH)(MAGNESIUM HYDROXIDE, A [Suspect]
     Dosage: ORAL
     Route: 048

REACTIONS (2)
  - CARDIAC DISORDER [None]
  - LUNG NEOPLASM MALIGNANT [None]
